FAERS Safety Report 19149772 (Version 4)
Quarter: 2021Q2

REPORT INFORMATION
  Report Type: Spontaneous
  Country: GB (occurrence: GB)
  Receive Date: 20210416
  Receipt Date: 20210623
  Transmission Date: 20210717
  Serious: Yes (Hospitalization, Other)
  Sender: FDA-Public Use
  Company Number: GB-BAXTER-2020BAX022796

PATIENT
  Sex: Male
  Weight: 122 kg

DRUGS (8)
  1. SODIUM CHLORIDE INTRAVENOUS INFUSION BP 0.9% W/V [Suspect]
     Active Substance: SODIUM CHLORIDE
     Route: 042
  2. WATER FOR INJECTION [Suspect]
     Active Substance: WATER
     Indication: MEDICATION DILUTION
     Dosage: OVER 30 MINUTES
     Route: 042
  3. SODIUM CHLORIDE INTRAVENOUS INFUSION BP 0.9% W/V [Suspect]
     Active Substance: SODIUM CHLORIDE
     Indication: MEDICATION DILUTION
     Dosage: OVER 30 MINUTES
     Route: 042
  4. SODIUM CHLORIDE INTRAVENOUS INFUSION BP 0.9% W/V [Suspect]
     Active Substance: SODIUM CHLORIDE
     Indication: CATHETER MANAGEMENT
     Dosage: 490 MILLIGRAM COMPOUNDED IN A 250 ML BAG OF SODIUM CHLORIDE, EVERY 6 WEEKS (6 WEEKLY)
     Route: 042
  5. REMSIMA [Suspect]
     Active Substance: INFLIXIMAB
     Indication: RHEUMATOID ARTHRITIS
     Dosage: 610 MG EVERY 6 WEEKS (6 WEEKLY INFUSION)
     Route: 042
     Dates: start: 20210126
  6. REMSIMA [Suspect]
     Active Substance: INFLIXIMAB
     Dosage: 490 MILLIGRAM COMPOUNDED IN A 250 ML BAG OF SODIUM CHLORIDE, EVERY 6 WEEKS (6 WEEKLY)
     Route: 042
  7. POSIFLUSH (SODIUM CHLORIDE) [Suspect]
     Active Substance: SODIUM CHLORIDE
     Indication: CATHETER MANAGEMENT
     Route: 042
  8. REMSIMA [Suspect]
     Active Substance: INFLIXIMAB
     Indication: CROHN^S DISEASE
     Dosage: OVER 30 MINUTES
     Route: 042

REACTIONS (9)
  - Lymphoedema [Not Recovered/Not Resolved]
  - Treatment delayed [Unknown]
  - Intentional dose omission [Unknown]
  - Flatulence [Unknown]
  - Cellulitis [Recovering/Resolving]
  - Lymphoma [Not Recovered/Not Resolved]
  - Weight decreased [Unknown]
  - General physical health deterioration [Unknown]
  - Localised infection [Recovered/Resolved]
